FAERS Safety Report 25930308 (Version 1)
Quarter: 2025Q4

REPORT INFORMATION
  Report Type: Spontaneous
  Country: US (occurrence: None)
  Receive Date: 20251015
  Receipt Date: 20251015
  Transmission Date: 20260118
  Serious: Yes (Life-Threatening, Disabling)
  Sender: FDA-CTU
  Company Number: None

PATIENT
  Age: 54 Year
  Sex: Male
  Weight: 83.25 kg

DRUGS (3)
  1. PAXIL [Suspect]
     Active Substance: PAROXETINE HYDROCHLORIDE
     Indication: Depression
     Dosage: FREQUENCY : DAILY;?
     Route: 048
  2. PAXIL [Suspect]
     Active Substance: PAROXETINE HYDROCHLORIDE
     Indication: Anxiety
  3. VALIUM [Concomitant]
     Active Substance: DIAZEPAM

REACTIONS (23)
  - Product communication issue [None]
  - Illness [None]
  - Anxiety [None]
  - Paradoxical drug reaction [None]
  - Vomiting [None]
  - Drug withdrawal syndrome [None]
  - Tinnitus [None]
  - Brain fog [None]
  - Cognitive disorder [None]
  - Depression [None]
  - Social anxiety disorder [None]
  - Obsessive thoughts [None]
  - Obsessive-compulsive disorder [None]
  - Paranoia [None]
  - Blunted affect [None]
  - Anger [None]
  - Tardive dyskinesia [None]
  - Dysphoria [None]
  - Feeling of despair [None]
  - Insomnia [None]
  - Affect lability [None]
  - Pain [None]
  - Drug dependence [None]

NARRATIVE: CASE EVENT DATE: 20000101
